FAERS Safety Report 6476459-5 (Version None)
Quarter: 2009Q4

REPORT INFORMATION
  Report Type: 
  Country: None (occurrence: None)
  Receive Date: 20091207
  Receipt Date: 20091122
  Transmission Date: 20100525
  Serious: No
  Sender: FDA-Public Use
  Company Number: US-B.I. PHARMACEUTICALS,INC./RIDGEFIELD-2009-BP-13591BP

PATIENT
  Sex: Male
  Weight: 69.85 kg

DRUGS (18)
  1. COMBIVENT [Suspect]
     Indication: CHRONIC OBSTRUCTIVE PULMONARY DISEASE
     Dosage: 6 PUF
     Route: 055
     Dates: start: 20070101
  2. MORPHINE [Concomitant]
     Indication: BACK PAIN
     Dates: start: 19970101
  3. NAPROXEN [Concomitant]
     Indication: BACK PAIN
  4. PROTONIX [Concomitant]
     Indication: GASTROOESOPHAGEAL REFLUX DISEASE
  5. GABAPENTIN [Concomitant]
  6. LORATADINE [Concomitant]
     Indication: HYPERSENSITIVITY
  7. METFORMIN HCL [Concomitant]
     Indication: DIABETES MELLITUS
  8. SIMVASTATIN [Concomitant]
     Indication: BLOOD CHOLESTEROL INCREASED
  9. TRAZODONE [Concomitant]
     Indication: SLEEP DISORDER
     Dates: start: 19970101
  10. ASPIRIN [Concomitant]
     Indication: ISCHAEMIC HEART DISEASE PROPHYLAXIS
     Dosage: 81 MG
     Dates: start: 19990101
  11. DOCUSATE STOOL SOFTENER [Concomitant]
     Indication: CONSTIPATION PROPHYLAXIS
  12. LIDOCAINE [Concomitant]
     Indication: BACK PAIN
     Route: 061
     Dates: start: 19970101
  13. SOMA [Concomitant]
     Indication: BACK PAIN
  14. KLONOPIN [Concomitant]
     Indication: ANXIETY
     Dosage: 0.5 MG
     Dates: start: 20090101
  15. KLONOPIN [Concomitant]
     Indication: DEPRESSION
  16. FLUNISOLIDE [Concomitant]
     Indication: HYPERSENSITIVITY
     Route: 045
  17. MOMETASONE FUROATE [Concomitant]
     Indication: CHRONIC OBSTRUCTIVE PULMONARY DISEASE
     Route: 055
  18. OXYGEN [Concomitant]
     Indication: CHRONIC OBSTRUCTIVE PULMONARY DISEASE

REACTIONS (1)
  - SUPERFICIAL INJURY OF EYE [None]
